FAERS Safety Report 24527003 (Version 1)
Quarter: 2024Q4

REPORT INFORMATION
  Report Type: Spontaneous
  Country: NL (occurrence: NL)
  Receive Date: 20241021
  Receipt Date: 20241021
  Transmission Date: 20250115
  Serious: Yes (Life-Threatening, Other)
  Sender: AUROBINDO
  Company Number: NL-LRB-01006437

PATIENT
  Age: 77 Year
  Sex: Male
  Weight: 80 kg

DRUGS (4)
  1. LISINOPRIL [Suspect]
     Active Substance: LISINOPRIL
     Indication: Heart valve operation
     Dosage: 5 MILLIGRAM, ONCE A DAY (1X1)
     Route: 065
     Dates: start: 20220615, end: 20241007
  2. DOMPERIDONE [Suspect]
     Active Substance: DOMPERIDONE
     Indication: Nausea
     Dosage: 10 MILLIGRAM, ONCE A DAY (1X1)
     Route: 065
     Dates: start: 20240927, end: 20241007
  3. FENTANYL [Concomitant]
     Active Substance: FENTANYL
     Indication: Product used for unknown indication
     Dosage: UNK (2 WEEKS OF FENTANYL)
     Route: 065
  4. OXYCODONE HYDROCHLORIDE [Concomitant]
     Active Substance: OXYCODONE HYDROCHLORIDE
     Indication: Product used for unknown indication
     Dosage: UNK (3 WEEKS OF OXYCODONE)
     Route: 065

REACTIONS (1)
  - Angioedema [Recovering/Resolving]
